FAERS Safety Report 20859863 (Version 2)
Quarter: 2022Q2

REPORT INFORMATION
  Report Type: Report from Study
  Country: GB (occurrence: GB)
  Receive Date: 20220523
  Receipt Date: 20220614
  Transmission Date: 20220721
  Serious: Yes (Hospitalization, Other)
  Sender: FDA-Public Use
  Company Number: GB-ABBVIE-22K-167-4402572-00

PATIENT
  Age: 73 Year
  Sex: Male

DRUGS (1)
  1. HUMIRA [Suspect]
     Active Substance: ADALIMUMAB
     Indication: Crohn^s disease
     Route: 058

REACTIONS (20)
  - Feeding disorder [Unknown]
  - Fluid intake reduced [Unknown]
  - Terminal state [Unknown]
  - Immunosuppression [Unknown]
  - Immunodeficiency [Unknown]
  - Seizure [Unknown]
  - Oesophageal stenosis [Unknown]
  - Oral candidiasis [Unknown]
  - Dehydration [Unknown]
  - Oropharyngeal candidiasis [Unknown]
  - Mouth ulceration [Unknown]
  - Tongue ulceration [Unknown]
  - Product monitoring error [Unknown]
  - Gait inability [Recovered/Resolved]
  - Emotional distress [Unknown]
  - Hypertension [Unknown]
  - Candida infection [Not Recovered/Not Resolved]
  - Vomiting [Unknown]
  - Anal candidiasis [Unknown]
  - Anal candidiasis [Not Recovered/Not Resolved]

NARRATIVE: CASE EVENT DATE: 20211201
